FAERS Safety Report 13874050 (Version 1)
Quarter: 2017Q3

REPORT INFORMATION
  Report Type: Report from Study
  Country: ES (occurrence: ES)
  Receive Date: 20170816
  Receipt Date: 20170816
  Transmission Date: 20171127
  Serious: Yes (Other)
  Sender: FDA-Public Use
  Company Number: ES-BAYER-2017-155325

PATIENT
  Age: 34 Year
  Sex: Male

DRUGS (4)
  1. ADRIAMYCIN [Suspect]
     Active Substance: DOXORUBICIN HYDROCHLORIDE
  2. BLEOMYCIN [Suspect]
     Active Substance: BLEOMYCIN SULFATE
  3. DACARBAZINE. [Suspect]
     Active Substance: DACARBAZINE
     Dosage: NOT REPORTED
  4. VINBLASTINE [Suspect]
     Active Substance: VINBLASTINE

REACTIONS (1)
  - Ototoxicity [Recovered/Resolved]
